FAERS Safety Report 5375479-1 (Version None)
Quarter: 2007Q2

REPORT INFORMATION
  Report Type: 
  Country: None (occurrence: None)
  Receive Date: 20070629
  Receipt Date: 20070620
  Transmission Date: 20071010
  Serious: Yes (Death)
  Sender: FDA-Public Use
  Company Number: US-SHR-US-2007-023287

PATIENT
  Sex: Male

DRUGS (2)
  1. MAGNEVIST [Suspect]
     Dates: start: 20050601, end: 20050601
  2. OMNISCAN [Suspect]
     Dates: start: 20050601, end: 20050601

REACTIONS (1)
  - NEPHROGENIC FIBROSING DERMOPATHY [None]
